FAERS Safety Report 8224227-6 (Version None)
Quarter: 2012Q1

REPORT INFORMATION
  Report Type: 
  Country: None (occurrence: None)
  Receive Date: 20120321
  Receipt Date: 20120312
  Transmission Date: 20120608
  Serious: Yes (Hospitalization)
  Sender: FDA-Public Use
  Company Number: IL-NOVOPROD-342558

PATIENT
  Age: 73 Year
  Sex: Male

DRUGS (7)
  1. ASPIRIN [Concomitant]
  2. COUMADIN [Concomitant]
     Dosage: UNK
     Dates: start: 20110404
  3. ZINNAT                             /00454602/ [Concomitant]
     Dosage: UNK
     Dates: start: 20110418, end: 20110420
  4. NOVOLOG [Suspect]
     Indication: TYPE 2 DIABETES MELLITUS
     Dosage: 24 IU, QD
     Route: 065
  5. SAXAGLIPTIN [Suspect]
     Indication: TYPE 2 DIABETES MELLITUS
     Dosage: UNK
     Route: 065
     Dates: start: 20110102
  6. DIURETIC                           /00022001/ [Concomitant]
     Dosage: UNK
     Dates: start: 20110102, end: 20110329
  7. STATIN                             /00036501/ [Concomitant]
     Dosage: UNK
     Dates: start: 20110102, end: 20110329

REACTIONS (3)
  - HYPOGLYCAEMIA [None]
  - BLADDER CANCER [None]
  - CARDIAC FAILURE CHRONIC [None]
